FAERS Safety Report 8758316 (Version 1)
Quarter: 2012Q4

REPORT INFORMATION
  Report Type: 
  Country: US (occurrence: US)
  Receive Date: 20120829
  Receipt Date: 20120829
  Transmission Date: 20130627
  Serious: Yes (Hospitalization)
  Sender: FDA-Public Use
  Company Number: US-ELI_LILLY_AND_COMPANY-US201205010040

PATIENT
  Sex: Male
  Weight: 29.3 kg

DRUGS (5)
  1. EFFIENT [Suspect]
     Indication: STENT PLACEMENT
     Dosage: 10 mg, qd
  2. CRESTOR [Concomitant]
     Dosage: 20 mg, UNK
  3. METOPROLOL [Concomitant]
  4. ASPIRIN [Concomitant]
     Dosage: 81 mg, UNK
  5. NEXIUM [Concomitant]
     Dosage: 40 mg, UNK

REACTIONS (1)
  - Nephrolithiasis [Not Recovered/Not Resolved]
